FAERS Safety Report 9401993 (Version 1)
Quarter: 2013Q3

REPORT INFORMATION
  Report Type: Spontaneous
  Country: US (occurrence: US)
  Receive Date: 20130716
  Receipt Date: 20130716
  Transmission Date: 20140515
  Serious: No
  Sender: FDA-Public Use
  Company Number: US-PFIZER INC-2013206405

PATIENT
  Age: 48 Year
  Sex: Female
  Weight: 134 kg

DRUGS (4)
  1. LYRICA [Suspect]
     Indication: FIBROMYALGIA
     Dosage: 150 MG, 2X/DAY
     Route: 048
     Dates: start: 201206
  2. COUMADIN [Suspect]
     Indication: ANTICOAGULANT THERAPY
     Dosage: 3 MG, 1X/DAY
     Dates: start: 201206
  3. ENALAPRIL [Concomitant]
     Indication: HYPERTENSION
     Dosage: 20 MG, 2X/DAY
  4. TRIAMTERENE/ HYDROCHLOROTHIAZIDE [Concomitant]
     Indication: HYPERTENSION
     Dosage: [TRIAMTERENE 75MG]/ [HYDROCHLOROTHIAZIDE 50MG],1X/DAY

REACTIONS (1)
  - Alopecia [Unknown]
